FAERS Safety Report 5001538-9 (Version None)
Quarter: 2006Q2

REPORT INFORMATION
  Report Type: 
  Country: None (occurrence: None)
  Receive Date: 20060510
  Receipt Date: 20060427
  Transmission Date: 20061013
  Serious: Yes (Hospitalization, Other)
  Sender: FDA-Public Use
  Company Number: 2006045202

PATIENT
  Age: 56 Year
  Sex: Male
  Weight: 48 kg

DRUGS (2)
  1. SUTENT [Suspect]
     Indication: METASTATIC RENAL CELL CARCINOMA
     Dosage: 50 MG (50 MG, QD INTERVAL: EVERY DAY), ORAL
     Route: 048
     Dates: start: 20060214, end: 20060314
  2. DEXAMETHASONE [Concomitant]

REACTIONS (9)
  - ASCITES [None]
  - BLOOD COUNT ABNORMAL [None]
  - DIARRHOEA [None]
  - ESCHERICHIA SEPSIS [None]
  - FEBRILE NEUTROPENIA [None]
  - HYPOALBUMINAEMIA [None]
  - HYPOKALAEMIA [None]
  - KLEBSIELLA SEPSIS [None]
  - THROMBOCYTOPENIA [None]
